FAERS Safety Report 7802437-7 (Version None)
Quarter: 2011Q4

REPORT INFORMATION
  Report Type: 
  Country: None (occurrence: None)
  Receive Date: 20111007
  Receipt Date: 20091210
  Transmission Date: 20120403
  Serious: Yes (Other)
  Sender: FDA-Public Use
  Company Number: US-GLAXOSMITHKLINE-A0835754A

PATIENT
  Age: 41 Year
  Sex: Female

DRUGS (1)
  1. AVANDIA [Suspect]
     Indication: TYPE 2 DIABETES MELLITUS
     Dosage: 4MG PER DAY
     Route: 048
     Dates: start: 20010601, end: 20041201

REACTIONS (7)
  - RIGHT VENTRICULAR FAILURE [None]
  - CARDIAC DISORDER [None]
  - LUNG DISORDER [None]
  - RESPIRATORY DISORDER [None]
  - ACUTE RESPIRATORY FAILURE [None]
  - OEDEMA [None]
  - FLUID OVERLOAD [None]
